FAERS Safety Report 4975876-X (Version None)
Quarter: 2006Q2

REPORT INFORMATION
  Report Type: 
  Country: None (occurrence: None)
  Receive Date: 20060411
  Receipt Date: 20060329
  Transmission Date: 20061013
  Serious: Yes (Hospitalization)
  Sender: FDA-Public Use
  Company Number: FPI-06-019

PATIENT
  Sex: Female
  Weight: 10 kg

DRUGS (1)
  1. TEV-TROPIN [Suspect]
     Indication: HYPOPITUITARISM
     Dosage: 0.4 MG, 7X/WK, SC
     Route: 058
     Dates: start: 20051015

REACTIONS (2)
  - DEHYDRATION [None]
  - HYPOGLYCAEMIA [None]
